FAERS Safety Report 8289982-8 (Version None)
Quarter: 2012Q2

REPORT INFORMATION
  Report Type: 
  Country: None (occurrence: None)
  Receive Date: 20120417
  Receipt Date: 20120403
  Transmission Date: 20120825
  Serious: Yes (Other)
  Sender: FDA-Public Use
  Company Number: NL-MYLANLABS-2012S1007235

PATIENT
  Age: 74 Year
  Sex: Male

DRUGS (1)
  1. CETIRIZINE [Suspect]
     Indication: HYPERSENSITIVITY
     Dosage: 1X PER DAG 1 ZO NODIG
     Route: 048
     Dates: start: 20120126, end: 20120222

REACTIONS (1)
  - ARRHYTHMIA [None]
